FAERS Safety Report 25066988 (Version 2)
Quarter: 2025Q2

REPORT INFORMATION
  Report Type: Spontaneous
  Country: JP (occurrence: JP)
  Receive Date: 20250312
  Receipt Date: 20250520
  Transmission Date: 20250716
  Serious: Yes (Other)
  Sender: GILEAD
  Company Number: JP-GILEAD-2025-0701358

PATIENT
  Age: 66 Year
  Sex: Female
  Weight: 69.5 kg

DRUGS (11)
  1. TRODELVY [Suspect]
     Active Substance: SACITUZUMAB GOVITECAN-HZIY
     Indication: Triple negative breast cancer
     Dosage: 700 MG, QD
     Route: 041
     Dates: start: 20250115, end: 20250115
  2. TRODELVY [Suspect]
     Active Substance: SACITUZUMAB GOVITECAN-HZIY
     Dosage: 500 MG, QD
     Route: 041
     Dates: start: 20250206, end: 20250206
  3. HERBALS [Concomitant]
     Active Substance: HERBALS
     Indication: Oedema
     Dosage: 2.5 G, TID
     Route: 048
     Dates: start: 20240802
  4. URSODIOL [Concomitant]
     Active Substance: URSODIOL
     Indication: Hepatic function abnormal
     Dosage: 200 MG, TID
     Route: 048
     Dates: start: 20241226
  5. PREGABALIN [Concomitant]
     Active Substance: PREGABALIN
     Indication: Neuropathy peripheral
     Route: 048
     Dates: start: 20241226
  6. PALONOSETRON HYDROCHLORIDE [Concomitant]
     Active Substance: PALONOSETRON HYDROCHLORIDE
     Indication: Chemotherapy side effect prophylaxis
     Dosage: 0.75 MG, QD
     Route: 041
     Dates: start: 20250115, end: 20250115
  7. FOSNETUPITANT CHLORIDE HYDROCHLORIDE [Concomitant]
     Active Substance: FOSNETUPITANT CHLORIDE HYDROCHLORIDE
     Indication: Chemotherapy side effect prophylaxis
     Dosage: 235 MG, QD
     Route: 041
     Dates: start: 20250115, end: 20250115
  8. DEXAMETHASONE SODIUM PHOSPHATE [Concomitant]
     Active Substance: DEXAMETHASONE SODIUM PHOSPHATE
     Indication: Chemotherapy side effect prophylaxis
     Dosage: 9.9 MG, QD
     Route: 041
     Dates: start: 20250115, end: 20250115
  9. DECADRON [Concomitant]
     Active Substance: DEXAMETHASONE
     Indication: Chemotherapy side effect prophylaxis
     Dosage: 4 MG, BID
     Route: 048
     Dates: start: 20250116, end: 20250118
  10. PROCHLORPERAZINE MALEATE [Concomitant]
     Active Substance: PROCHLORPERAZINE MALEATE
     Indication: Chemotherapy side effect prophylaxis
     Dosage: 5 MG, TID
     Route: 048
     Dates: start: 20250115, end: 20250121
  11. FAMOTIDINE [Concomitant]
     Active Substance: FAMOTIDINE
     Indication: Chemotherapy side effect prophylaxis
     Dosage: 20 MG, BID
     Route: 048
     Dates: start: 20250115, end: 20250121

REACTIONS (3)
  - Neutropenia [Recovered/Resolved]
  - Thrombocytopenia [Recovered/Resolved]
  - Metastases to meninges [Unknown]

NARRATIVE: CASE EVENT DATE: 20250123
